FAERS Safety Report 16758587 (Version 1)
Quarter: 2019Q3

REPORT INFORMATION
  Report Type: Report from Study
  Country: CN (occurrence: CN)
  Receive Date: 20190830
  Receipt Date: 20190830
  Transmission Date: 20191005
  Serious: Yes (Other)
  Sender: FDA-Public Use
  Company Number: CN-ROCHE-2390197

PATIENT

DRUGS (4)
  1. OXALIPLATIN. [Suspect]
     Active Substance: OXALIPLATIN
     Indication: COLORECTAL CANCER
     Route: 065
  2. PIRARUBICIN [Suspect]
     Active Substance: PIRARUBICIN
     Indication: COLORECTAL CANCER
     Route: 065
  3. CAPECITABINE. [Suspect]
     Active Substance: CAPECITABINE
     Indication: COLORECTAL CANCER
     Dosage: ON SECOND DAY OF CHEMOEMBOLIZATION,? DAY 1 TO 14 (21 DAY AS A CHEMOTHERAPY CYCLE, TOTAL 3 TO 4 CONTI
     Route: 048
  4. RALTITREXED [Suspect]
     Active Substance: RALTITREXED
     Indication: COLORECTAL CANCER
     Route: 065

REACTIONS (7)
  - Abdominal pain [Unknown]
  - Hepatic function abnormal [Unknown]
  - Alopecia [Unknown]
  - Gastrointestinal disorder [Unknown]
  - Pyrexia [Unknown]
  - Neuropathy peripheral [Unknown]
  - Bone marrow failure [Unknown]
